FAERS Safety Report 16268203 (Version 2)
Quarter: 2024Q4

REPORT INFORMATION
  Report Type: Spontaneous
  Country: US (occurrence: US)
  Receive Date: 20190503
  Receipt Date: 20241218
  Transmission Date: 20250115
  Serious: Yes (Other)
  Sender: CSL BEHRING
  Company Number: US-BEH-2019101843

PATIENT
  Sex: Male

DRUGS (7)
  1. HAEGARDA [Suspect]
     Active Substance: HUMAN C1-ESTERASE INHIBITOR
     Indication: Hereditary angioedema
     Dosage: 5000 IU (3000 + 2000 UNIT VIALS), BIW (EVERY 3 OR 4 DAYS)
     Route: 058
     Dates: start: 201901
  2. HAEGARDA [Suspect]
     Active Substance: HUMAN C1-ESTERASE INHIBITOR
     Indication: Prophylaxis
     Dosage: 5000 IU (3000 + 2000 UNIT VIALS), (EVERY 3 OR 4 DAYS)
     Route: 058
  3. DANAZOL [Concomitant]
     Active Substance: DANAZOL
     Dosage: 200 MG, UNK
     Route: 065
  4. PANTOPRAZOLE [Concomitant]
     Active Substance: PANTOPRAZOLE
     Dosage: 40 MG, UNK
     Route: 065
  5. PREDNISONE [Concomitant]
     Active Substance: PREDNISONE
     Dosage: 1 MG
  6. VITAMINS [Concomitant]
     Active Substance: VITAMINS
  7. KETOROLAC TROMETHAMINE [Concomitant]
     Active Substance: KETOROLAC TROMETHAMINE

REACTIONS (3)
  - Neoplasm malignant [Unknown]
  - Rhinorrhoea [Unknown]
  - Therapy interrupted [Unknown]
